FAERS Safety Report 5480711-X (Version None)
Quarter: 2007Q4

REPORT INFORMATION
  Report Type: 
  Country: None (occurrence: None)
  Receive Date: 20071003
  Receipt Date: 20070917
  Transmission Date: 20080405
  Serious: Yes (Death, Other)
  Sender: FDA-Public Use
  Company Number: 2007VX000787

PATIENT
  Age: 53 Year
  Sex: Male
  Weight: 66.2252 kg

DRUGS (14)
  1. INTERFERON ALFACON-1 [Suspect]
     Indication: HEPATITIS C
     Dosage: 15 UG; QD; SC
     Route: 058
     Dates: start: 20070227, end: 20070501
  2. RIBAVIRIN [Suspect]
     Indication: HEPATITIS C
     Dosage: 400 MG; QAM; PO; 600 MG; QPM; PO
     Route: 048
     Dates: start: 20070227, end: 20070511
  3. RIBAVIRIN [Suspect]
     Indication: HEPATITIS C
     Dosage: 400 MG; QAM; PO; 600 MG; QPM; PO
     Route: 048
     Dates: start: 20070227, end: 20070511
  4. SYNTHROID [Concomitant]
  5. OXYCODONE HCL [Concomitant]
  6. AMBIEN [Concomitant]
  7. ZOFRAN [Concomitant]
  8. TUMS [Concomitant]
  9. CELLCEPT [Concomitant]
  10. PROGRAF [Concomitant]
  11. ACETYLSALICYLIC ACID [Concomitant]
  12. CALCIUM [Concomitant]
  13. NEUPOGEN [Concomitant]
  14. BENADRYL ^PFIZER WARNER-LAMBERT^ [Concomitant]

REACTIONS (12)
  - ABDOMINAL PAIN UPPER [None]
  - AGEUSIA [None]
  - FATIGUE [None]
  - FEELING ABNORMAL [None]
  - FLUID RETENTION [None]
  - HEADACHE [None]
  - HEPATIC FAILURE [None]
  - INSOMNIA [None]
  - LIVER TRANSPLANT REJECTION [None]
  - OEDEMA PERIPHERAL [None]
  - RED BLOOD CELL COUNT DECREASED [None]
  - WHITE BLOOD CELL COUNT DECREASED [None]
